FAERS Safety Report 21880842 (Version 1)
Quarter: 2023Q1

REPORT INFORMATION
  Report Type: Spontaneous
  Country: FR (occurrence: FR)
  Receive Date: 20230118
  Receipt Date: 20230118
  Transmission Date: 20230417
  Serious: Yes (Life-Threatening)
  Sender: FDA-Public Use
  Company Number: None

PATIENT
  Age: 56 Year
  Sex: Female
  Weight: 68 kg

DRUGS (10)
  1. DEXAMETHASONE [Suspect]
     Active Substance: DEXAMETHASONE
     Indication: Cholecystectomy
     Dosage: 8 MILLIGRAM
     Route: 042
     Dates: start: 20210712, end: 20210712
  2. CISATRACURIUM [Suspect]
     Active Substance: CISATRACURIUM
     Indication: Cholecystectomy
     Dosage: 12 MILLIGRAM
     Route: 042
     Dates: start: 20210712, end: 20210712
  3. SUFENTANIL [Suspect]
     Active Substance: SUFENTANIL
     Indication: Cholecystectomy
     Dosage: 20 MICROGRAM
     Route: 042
     Dates: start: 20210712, end: 20210712
  4. ACUPAN [Suspect]
     Active Substance: NEFOPAM HYDROCHLORIDE
     Indication: Pain
     Dosage: 20 MILLIGRAM
     Route: 042
     Dates: start: 20210712, end: 20210712
  5. ACETAMINOPHEN [Suspect]
     Active Substance: ACETAMINOPHEN
     Indication: Pain
     Dosage: 1000 MILLIGRAM
     Route: 042
     Dates: start: 20210712, end: 20210712
  6. PROPOFOL [Suspect]
     Active Substance: PROPOFOL
     Indication: Cholecystectomy
     Dosage: 200 MILLIGRAM
     Route: 042
     Dates: start: 20210712, end: 20210712
  7. NOREPINEPHRINE [Suspect]
     Active Substance: NOREPINEPHRINE
     Indication: Cholecystectomy
     Dosage: 0.14 MILLIGRAM
     Route: 042
     Dates: start: 20210712, end: 20210712
  8. KETAMINE HYDROCHLORIDE [Suspect]
     Active Substance: KETAMINE HYDROCHLORIDE
     Indication: Cholecystectomy
     Dosage: 20 MILLIGRAM
     Route: 042
     Dates: start: 20210712, end: 20210712
  9. DROPERIDOL [Suspect]
     Active Substance: DROPERIDOL
     Indication: Cholecystectomy
     Dosage: 0.62 MILLIGRAM
     Route: 042
     Dates: start: 20210712, end: 20210712
  10. CEFAZOLIN SODIUM [Concomitant]
     Active Substance: CEFAZOLIN SODIUM
     Indication: Cholecystectomy
     Dosage: 2 GRAM
     Route: 042
     Dates: start: 20210712, end: 20210712

REACTIONS (1)
  - Blood pressure decreased [Recovered/Resolved]

NARRATIVE: CASE EVENT DATE: 20210712
